FAERS Safety Report 25989926 (Version 1)
Quarter: 2025Q4

REPORT INFORMATION
  Report Type: Spontaneous
  Country: US (occurrence: None)
  Receive Date: 20251031
  Receipt Date: 20251031
  Transmission Date: 20260118
  Serious: Yes (Death, Hospitalization)
  Sender: FDA-CTU
  Company Number: None

PATIENT
  Age: 66 Year
  Sex: Male

DRUGS (20)
  1. OFEV [Suspect]
     Active Substance: NINTEDANIB
     Indication: Idiopathic pulmonary fibrosis
     Dosage: FREQUENCY : TWICE A DAY;?
     Route: 048
     Dates: start: 20231121, end: 20250924
  2. LORAZEPAM [Concomitant]
     Active Substance: LORAZEPAM
  3. morphine concentrate [Concomitant]
  4. DUONEB [Concomitant]
     Active Substance: ALBUTEROL SULFATE\IPRATROPIUM BROMIDE
  5. ALBUTEROL SULFATE [Concomitant]
     Active Substance: ALBUTEROL SULFATE
  6. ATORVASTATIN [Concomitant]
     Active Substance: ATORVASTATIN
  7. atropine opht drop [Concomitant]
  8. BUPROPION [Concomitant]
     Active Substance: BUPROPION
  9. CELECOXIB [Concomitant]
     Active Substance: CELECOXIB
  10. CETIRIZINE [Concomitant]
     Active Substance: CETIRIZINE HYDROCHLORIDE
  11. alvesco HFA [Concomitant]
  12. FAMOTIDINE [Concomitant]
     Active Substance: FAMOTIDINE
  13. GABAPENTIN [Concomitant]
     Active Substance: GABAPENTIN
  14. mupirocin top oint [Concomitant]
  15. PHENOBARBITAL [Concomitant]
     Active Substance: PHENOBARBITAL
  16. MIRALAX [Concomitant]
     Active Substance: POLYETHYLENE GLYCOL 3350
  17. SENNOSIDES [Concomitant]
     Active Substance: SENNOSIDES
  18. SERTRALINE [Concomitant]
     Active Substance: SERTRALINE HYDROCHLORIDE
  19. STIOLTO RESPIMAT [Concomitant]
     Active Substance: OLODATEROL HYDROCHLORIDE\TIOTROPIUM BROMIDE MONOHYDRATE
  20. TRAZODONE [Concomitant]
     Active Substance: TRAZODONE HYDROCHLORIDE

REACTIONS (6)
  - Interstitial lung disease [None]
  - Chronic obstructive pulmonary disease [None]
  - COVID-19 [None]
  - Diarrhoea [None]
  - General physical health deterioration [None]
  - Hospice care [None]

NARRATIVE: CASE EVENT DATE: 20250924
